FAERS Safety Report 7960029-3 (Version None)
Quarter: 2011Q4

REPORT INFORMATION
  Report Type: 
  Country: None (occurrence: None)
  Receive Date: 20111206
  Receipt Date: 20111129
  Transmission Date: 20120403
  Serious: Yes (Hospitalization, Other)
  Sender: FDA-Public Use
  Company Number: PHHO2011FR13646

PATIENT
  Sex: Male
  Weight: 81 kg

DRUGS (20)
  1. NEORAL [Suspect]
     Dosage: 500 MG, UNK
     Route: 048
     Dates: start: 20110801, end: 20110802
  2. MYCOPHENOLATE MOFETIL (CELLCEPT) [Concomitant]
     Indication: RENAL TRANSPLANT
     Dosage: 1500 MG, QD
     Route: 048
     Dates: start: 20110730
  3. PROGRAF [Concomitant]
     Dosage: 4 MG, QD
     Route: 048
     Dates: start: 20110818
  4. NEORAL [Suspect]
     Dosage: 500 MG, QD
     Route: 002
     Dates: start: 20110730, end: 20110918
  5. EZETIMIBE [Concomitant]
     Dosage: 10MG/20MG
     Route: 048
     Dates: start: 20110730, end: 20110813
  6. NEORAL [Suspect]
     Indication: RENAL TRANSPLANT
     Dosage: 250 MG, UNK
     Route: 048
     Dates: start: 20110729, end: 20110730
  7. SIMULECT [Concomitant]
     Indication: INFUSION
     Dosage: 20 MG, UNK
     Route: 042
     Dates: start: 20110730, end: 20110805
  8. NEORAL [Suspect]
     Dosage: 200 MG, QD
     Route: 002
     Dates: start: 20110730, end: 20110919
  9. PREDNISOLONE [Concomitant]
     Indication: TRANSPLANT REJECTION
     Dosage: 5 MG, QD
     Route: 002
     Dates: start: 20110807
  10. RILMENIDINE [Concomitant]
     Dosage: 2 MG, UNK
     Route: 048
     Dates: start: 20110802, end: 20110804
  11. SOLU-MEDROL [Concomitant]
     Dosage: 90 MG, QD
     Route: 042
     Dates: start: 20110731, end: 20110806
  12. ACETYLSALICYLIC ACID SRT [Concomitant]
     Dosage: 160 MG, UNK
     Route: 048
     Dates: start: 20110731, end: 20110804
  13. SIMULECT [Concomitant]
     Dosage: 20 MG, QD
     Route: 042
     Dates: start: 20110730, end: 20110730
  14. PREDNISOLONE [Concomitant]
     Dosage: 5 MG, QD
     Route: 048
     Dates: start: 20110818
  15. SOLU-MEDROL [Concomitant]
     Indication: RENAL TRANSPLANT
     Dosage: 500 MG, UNK
     Route: 042
     Dates: start: 20110730, end: 20110730
  16. SOLU-MEDROL [Concomitant]
     Dosage: 90 MG, UNK
     Route: 042
     Dates: start: 20110731
  17. NEORAL [Suspect]
     Dosage: 250 MG, UNK
     Route: 048
     Dates: start: 20110731, end: 20110731
  18. MYCOPHENOLATE MOFETIL (CELLCEPT) [Concomitant]
     Dosage: 3 G, QD
     Route: 048
     Dates: start: 20110730
  19. BISOPROLOL FUMARATE [Concomitant]
     Dosage: 10 MG, UNK
     Route: 048
     Dates: start: 20110730
  20. NEORAL [Suspect]
     Dosage: 500 MG, UNK
     Route: 048
     Dates: start: 20110730, end: 20110730

REACTIONS (6)
  - RENAL LYMPHOCELE [None]
  - ENTEROCOCCAL INFECTION [None]
  - PYELONEPHRITIS ACUTE [None]
  - SEPSIS [None]
  - URINOMA [None]
  - ESCHERICHIA INFECTION [None]
